FAERS Safety Report 8155155-2 (Version None)
Quarter: 2012Q1

REPORT INFORMATION
  Report Type: 
  Country: None (occurrence: None)
  Receive Date: 20120221
  Receipt Date: 20120220
  Transmission Date: 20120608
  Serious: Yes (Other)
  Sender: FDA-Public Use
  Company Number: US-ABBOTT-12P-163-0901055-00

PATIENT
  Age: 28 Year
  Sex: Female

DRUGS (3)
  1. TRUVADA [Suspect]
     Indication: ANTIRETROVIRAL THERAPY
     Route: 048
  2. NORVIR [Suspect]
     Indication: ANTIRETROVIRAL THERAPY
     Route: 048
  3. REYATAZ [Suspect]
     Indication: ANTIRETROVIRAL THERAPY
     Route: 048

REACTIONS (1)
  - ABORTION SPONTANEOUS [None]
